FAERS Safety Report 8743996 (Version 2)
Quarter: 2012Q4

REPORT INFORMATION
  Report Type: 
  Country: US (occurrence: US)
  Receive Date: 20120824
  Receipt Date: 20121030
  Transmission Date: 20130627
  Serious: Yes (Other)
  Sender: FDA-Public Use
  Company Number: US-ROCHE-788937

PATIENT
  Age: 27 Year
  Sex: Male
  Weight: 63.56 kg

DRUGS (4)
  1. ACCUTANE [Suspect]
     Indication: ACNE
     Route: 048
     Dates: start: 1995, end: 1996
  2. ACCUTANE [Suspect]
     Route: 048
     Dates: start: 20041102, end: 2005
  3. EXCEDRIN (UNITED STATES) [Concomitant]
  4. ADVIL [Concomitant]

REACTIONS (6)
  - Inflammatory bowel disease [Unknown]
  - Colitis ulcerative [Unknown]
  - Emotional distress [Unknown]
  - Depression [Unknown]
  - Suicidal ideation [Unknown]
  - Dry skin [Unknown]
